FAERS Safety Report 6486502-5 (Version None)
Quarter: 2009Q4

REPORT INFORMATION
  Report Type: 
  Country: None (occurrence: None)
  Receive Date: 20091210
  Receipt Date: 20091130
  Transmission Date: 20100525
  Serious: No
  Sender: FDA-Public Use
  Company Number: US-JNJFOC-20091200887

PATIENT
  Age: 50 Year
  Sex: Female
  Weight: 41.73 kg

DRUGS (3)
  1. DURAGESIC-100 [Suspect]
     Indication: PAIN
     Route: 062
     Dates: end: 20091001
  2. DURAGESIC-100 [Suspect]
     Route: 062
     Dates: start: 20091001
  3. LORTAB [Concomitant]
     Indication: PAIN
     Route: 048

REACTIONS (2)
  - INCORRECT DOSE ADMINISTERED [None]
  - WRONG TECHNIQUE IN DRUG USAGE PROCESS [None]
